FAERS Safety Report 5460513-0 (Version None)
Quarter: 2007Q3

REPORT INFORMATION
  Report Type: 
  Country: None (occurrence: None)
  Receive Date: 20070919
  Receipt Date: 20070716
  Transmission Date: 20080115
  Serious: Yes (Hospitalization)
  Sender: FDA-Public Use
  Company Number: US-ASTRAZENECA-2007UW16909

PATIENT
  Age: 13 Year
  Sex: Male

DRUGS (3)
  1. SEROQUEL [Suspect]
     Route: 048
     Dates: start: 20070101, end: 20070714
  2. PROZAC [Concomitant]
  3. ADDERALL 10 [Concomitant]

REACTIONS (1)
  - ABDOMINAL PAIN UPPER [None]
